FAERS Safety Report 7345538 (Version 5)
Quarter: 2013Q3

REPORT INFORMATION
  Report Type: Report from Study
  Country: JP (occurrence: JP)
  Receive Date: 20100406
  Receipt Date: 20130814
  Transmission Date: 20140515
  Serious: Yes (Hospitalization)
  Sender: FDA-Public Use
  Company Number: JP-ROCHE-694946

PATIENT
  Age: 61 Year
  Sex: Female
  Weight: 61 kg

DRUGS (44)
  1. TOCILIZUMAB [Suspect]
     Indication: RHEUMATOID ARTHRITIS
     Route: 041
     Dates: start: 20080618, end: 20080618
  2. TOCILIZUMAB [Suspect]
     Indication: RHEUMATOID ARTHRITIS
     Route: 041
     Dates: start: 20080716, end: 20080716
  3. TOCILIZUMAB [Suspect]
     Indication: RHEUMATOID ARTHRITIS
     Route: 041
     Dates: start: 20080813, end: 20080813
  4. TOCILIZUMAB [Suspect]
     Indication: RHEUMATOID ARTHRITIS
     Route: 041
     Dates: start: 20080910, end: 20080910
  5. TOCILIZUMAB [Suspect]
     Indication: RHEUMATOID ARTHRITIS
     Route: 041
     Dates: start: 20081119, end: 20081119
  6. TOCILIZUMAB [Suspect]
     Indication: RHEUMATOID ARTHRITIS
     Route: 041
     Dates: start: 20081217, end: 20081217
  7. TOCILIZUMAB [Suspect]
     Indication: RHEUMATOID ARTHRITIS
     Route: 041
     Dates: start: 20090114, end: 20090114
  8. TOCILIZUMAB [Suspect]
     Indication: RHEUMATOID ARTHRITIS
     Route: 041
     Dates: start: 20090218, end: 20090218
  9. TOCILIZUMAB [Suspect]
     Indication: RHEUMATOID ARTHRITIS
     Route: 041
     Dates: start: 20090318, end: 20090318
  10. TOCILIZUMAB [Suspect]
     Indication: RHEUMATOID ARTHRITIS
     Route: 041
     Dates: start: 20090415, end: 20090415
  11. TOCILIZUMAB [Suspect]
     Indication: RHEUMATOID ARTHRITIS
     Route: 041
     Dates: start: 20090520, end: 20090520
  12. TOCILIZUMAB [Suspect]
     Indication: RHEUMATOID ARTHRITIS
     Route: 041
     Dates: start: 20090617, end: 20090617
  13. TOCILIZUMAB [Suspect]
     Indication: RHEUMATOID ARTHRITIS
     Route: 041
     Dates: start: 20090715, end: 20090715
  14. TOCILIZUMAB [Suspect]
     Indication: RHEUMATOID ARTHRITIS
     Route: 041
     Dates: start: 20090812, end: 20090812
  15. TOCILIZUMAB [Suspect]
     Indication: RHEUMATOID ARTHRITIS
     Route: 041
     Dates: start: 20090930, end: 20090930
  16. TOCILIZUMAB [Suspect]
     Indication: RHEUMATOID ARTHRITIS
     Route: 041
     Dates: start: 20091028, end: 20091028
  17. TOCILIZUMAB [Suspect]
     Indication: RHEUMATOID ARTHRITIS
     Route: 041
     Dates: start: 20091202, end: 20091202
  18. TOCILIZUMAB [Suspect]
     Indication: RHEUMATOID ARTHRITIS
     Route: 041
     Dates: start: 20100127, end: 20100127
  19. METHOTREXATE [Concomitant]
     Indication: RHEUMATOID ARTHRITIS
     Route: 048
     Dates: end: 20081013
  20. METHOTREXATE [Concomitant]
     Indication: RHEUMATOID ARTHRITIS
     Route: 048
     Dates: start: 20081024, end: 20081216
  21. METHOTREXATE [Concomitant]
     Indication: RHEUMATOID ARTHRITIS
     Route: 048
     Dates: start: 20081217
  22. METHOTREXATE [Concomitant]
     Indication: RHEUMATOID ARTHRITIS
     Route: 048
     Dates: end: 20100412
  23. CONIEL [Concomitant]
     Indication: HYPERTENSION
     Route: 048
  24. BLOPRESS [Concomitant]
     Indication: HYPERTENSION
     Route: 048
  25. MOBIC [Concomitant]
     Indication: RHEUMATOID ARTHRITIS
     Route: 048
  26. FOLIAMIN [Concomitant]
     Indication: RHEUMATOID ARTHRITIS
     Route: 048
  27. ONEALFA [Concomitant]
     Indication: OSTEOPOROSIS
     Dosage: FORM: PERORAL AGENT
     Route: 048
  28. LIPITOR [Concomitant]
     Indication: DYSLIPIDAEMIA
     Route: 048
  29. TAKEPRON [Concomitant]
     Indication: GASTRITIS
     Route: 048
  30. BONALON [Concomitant]
     Indication: OSTEOPOROSIS
     Route: 048
  31. MAGLAX [Concomitant]
     Indication: CONSTIPATION
     Dosage: FORM: PERORAL AGENT
     Route: 048
  32. VOLTAREN SUPPOSITORIES [Concomitant]
     Indication: RHEUMATOID ARTHRITIS
     Route: 061
     Dates: start: 20080618, end: 20081107
  33. MOHRUS [Concomitant]
     Indication: RHEUMATOID ARTHRITIS
     Dosage: FORM: TAPE
     Route: 061
     Dates: start: 20080618, end: 20081029
  34. LAMISIL [Concomitant]
     Indication: TINEA INFECTION
     Dosage: PROPERLY
     Route: 003
  35. LAMISIL [Concomitant]
     Indication: TINEA INFECTION
     Dosage: PROPERLY
     Route: 003
  36. MUCOSTA [Concomitant]
     Indication: GASTRITIS
     Route: 048
  37. METHYCOBAL [Concomitant]
     Indication: NEUROPATHY PERIPHERAL
     Route: 048
     Dates: start: 20080910, end: 20081216
  38. FERO-GRADUMET [Concomitant]
     Indication: IRON DEFICIENCY ANAEMIA
     Route: 048
     Dates: start: 20080924, end: 20081014
  39. LOXONIN [Concomitant]
     Indication: RHEUMATOID ARTHRITIS
     Dosage: FORM: TAPE, DOSAGE ADJUSTED
     Route: 061
     Dates: start: 20081030, end: 20081216
  40. LORCAM [Concomitant]
     Indication: RHEUMATOID ARTHRITIS
     Dosage: TAKEN AS NEEDED 4 MG A DAY
     Route: 048
     Dates: start: 20081017, end: 20081216
  41. LENDORMIN [Concomitant]
     Indication: INSOMNIA
     Route: 048
     Dates: start: 20081103, end: 20081216
  42. RHEUMATREX [Concomitant]
  43. PREDNISOLONE [Concomitant]
  44. RHEUMATREX [Concomitant]

REACTIONS (3)
  - Glomerulonephritis [Recovering/Resolving]
  - Cellulitis [Recovered/Resolved]
  - Cytomegalovirus infection [Recovered/Resolved]
